FAERS Safety Report 8602424 (Version 6)
Quarter: 2012Q4

REPORT INFORMATION
  Report Type: 
  Country: JP (occurrence: JP)
  Receive Date: 20120607
  Receipt Date: 20120914
  Transmission Date: 20130627
  Serious: Yes (Life-Threatening, Hospitalization, Other)
  Sender: FDA-Public Use
  Company Number: JP-SP-2012-05753

PATIENT
  Age: 63 Year
  Sex: Male
  Weight: 52 kg

DRUGS (1)
  1. IMMUCYST [Suspect]
     Indication: BLADDER CANCER
     Route: 043
     Dates: start: 20120319, end: 20120508

REACTIONS (5)
  - Splenic abscess [Recovered/Resolved with Sequelae]
  - White blood cell count decreased [Recovered/Resolved]
  - Pyrexia [Recovered/Resolved]
  - Decreased appetite [Recovered/Resolved]
  - Hepatic function abnormal [Recovered/Resolved]
